FAERS Safety Report 5029502-4 (Version None)
Quarter: 2006Q2

REPORT INFORMATION
  Report Type: 
  Country: None (occurrence: None)
  Receive Date: 20060620
  Receipt Date: 20050613
  Transmission Date: 20061013
  Serious: No
  Sender: FDA-Public Use
  Company Number: US-GLAXOSMITHKLINE-A0562407A

PATIENT
  Age: 30 Year
  Sex: Male

DRUGS (2)
  1. ZYBAN [Suspect]
     Dosage: 1TAB PER DAY
     Route: 048
     Dates: start: 20050610
  2. NO CONCURRENT MEDICATION [Concomitant]

REACTIONS (5)
  - ANOREXIA [None]
  - ENERGY INCREASED [None]
  - FEELING JITTERY [None]
  - SLEEP DISORDER [None]
  - THERAPEUTIC RESPONSE UNEXPECTED [None]
